FAERS Safety Report 5228512-1 (Version None)
Quarter: 2007Q1

REPORT INFORMATION
  Report Type: 
  Country: None (occurrence: None)
  Receive Date: 20070131
  Receipt Date: 20070131
  Transmission Date: 20070707
  Serious: Yes (Other)
  Sender: FDA-Public Use
  Company Number: None

PATIENT
  Sex: Male
  Weight: 95.2554 kg

DRUGS (1)
  1. LYRICA [Suspect]
     Indication: NEURALGIA
     Dosage: 75 MG TWICE A DAY ORALLY
     Route: 048
     Dates: start: 20060912, end: 20060916

REACTIONS (4)
  - CONFUSIONAL STATE [None]
  - DIZZINESS [None]
  - PANIC ATTACK [None]
  - SOMNOLENCE [None]
